FAERS Safety Report 6622817-5 (Version None)
Quarter: 2010Q1

REPORT INFORMATION
  Report Type: 
  Country: None (occurrence: None)
  Receive Date: 20100305
  Receipt Date: 20100222
  Transmission Date: 20100710
  Serious: Yes (Other)
  Sender: FDA-Public Use
  Company Number: 2010SP008304

PATIENT
  Age: 24 Year
  Sex: Male

DRUGS (5)
  1. MIRTAZAPINE [Suspect]
     Indication: DEPRESSION
     Dosage: 45 MG; QD;, 30 MG; QD;
     Dates: start: 20070101
  2. SOLIAN (AMISULPRIDE) [Suspect]
     Indication: DRUG USE FOR UNKNOWN INDICATION
     Dosage: 600 MG; BID;, 500 MG;, 600 MG;
     Dates: start: 20090901
  3. ZYPREXA [Suspect]
     Indication: DRUG USE FOR UNKNOWN INDICATION
     Dosage: 12.5 MG; QD;
  4. EPILIM [Concomitant]
  5. VALIUM [Concomitant]

REACTIONS (5)
  - AGGRESSION [None]
  - CONDITION AGGRAVATED [None]
  - PSYCHOTIC DISORDER [None]
  - THERAPY REGIMEN CHANGED [None]
  - UNEVALUABLE EVENT [None]
